FAERS Safety Report 20775862 (Version 6)
Quarter: 2022Q2

REPORT INFORMATION
  Report Type: Report from Study
  Country: PL (occurrence: None)
  Receive Date: 20220502
  Receipt Date: 20220620
  Transmission Date: 20220721
  Serious: Yes (Death)
  Sender: FDA-Public Use
  Company Number: PL-ROCHE-3087718

PATIENT
  Age: 24 Year
  Sex: Female

DRUGS (63)
  1. OCRELIZUMAB [Suspect]
     Active Substance: OCRELIZUMAB
     Indication: Relapsing-remitting multiple sclerosis
     Dosage: ON 08/NOV/2021, (WEEK 3), AT 10:35 SHE RECEIVED THE MOST RECENT DOES OF OCRELIZUMAB PRIOR TO THIS AE
     Route: 042
     Dates: start: 20210520
  2. METHYLPREDNISOLONE [Concomitant]
     Active Substance: METHYLPREDNISOLONE
     Indication: Premedication
     Dosage: ADDITIONAL TREATMENT DATE: 08/NOV/2021.
     Route: 042
     Dates: start: 20210520
  3. ZYRTEC (POLAND) [Concomitant]
     Indication: Premedication
     Dosage: ADDITIONAL TREATMENT DATE: 08/NOV/2021.
     Route: 048
     Dates: start: 20210520
  4. ACETYLCYSTEINE [Concomitant]
     Active Substance: ACETYLCYSTEINE
     Route: 048
  5. MEMANTINE HYDROCHLORIDE [Concomitant]
     Active Substance: MEMANTINE HYDROCHLORIDE
     Route: 048
  6. CEFTRIAXONE SODIUM [Concomitant]
     Active Substance: CEFTRIAXONE SODIUM
  7. BUDIXON NEB [Concomitant]
     Dosage: 1 INHALATION
  8. VALPROATE SODIUM [Concomitant]
     Active Substance: VALPROATE SODIUM
  9. DEXAMETHASONE [Concomitant]
     Active Substance: DEXAMETHASONE
     Route: 042
  10. ENTEROL 250 [Concomitant]
     Route: 048
  11. EUTHYROX [Concomitant]
     Active Substance: LEVOTHYROXINE SODIUM
     Route: 048
  12. HYDROXYZINE HYDROCHLORIDE [Concomitant]
     Active Substance: HYDROXYZINE HYDROCHLORIDE
     Route: 048
  13. MEROPENEM [Concomitant]
     Active Substance: MEROPENEM
     Route: 042
  14. ENOXAPARIN SODIUM [Concomitant]
     Active Substance: ENOXAPARIN SODIUM
  15. PANTOPRAZ [Concomitant]
     Route: 048
  16. ACETAMINOPHEN [Concomitant]
     Active Substance: ACETAMINOPHEN
     Route: 042
  17. THIOCODIN (POLAND) [Concomitant]
     Route: 048
  18. SUFENTANIL [Concomitant]
     Active Substance: SUFENTANIL
  19. MIDAZOLAM HYDROCHLORIDE [Concomitant]
     Active Substance: MIDAZOLAM HYDROCHLORIDE
  20. PROPOFOL [Concomitant]
     Active Substance: PROPOFOL
  21. ROCURONIUM [Concomitant]
     Active Substance: ROCURONIUM BROMIDE
  22. KETAMINA [Concomitant]
  23. TIAPRIDE HYDROCHLORIDE [Concomitant]
     Active Substance: TIAPRIDE HYDROCHLORIDE
  24. PREGABALIN [Concomitant]
     Active Substance: PREGABALIN
  25. METHADONE HYDROCHLORIDE [Concomitant]
     Active Substance: METHADONE HYDROCHLORIDE
  26. LEVONOR (POLAND) [Concomitant]
  27. EMPESIN [Concomitant]
  28. CORDARONE [Concomitant]
     Active Substance: AMIODARONE HYDROCHLORIDE
  29. IVABRADINE [Concomitant]
     Active Substance: IVABRADINE
  30. PROPRANOLOL [Concomitant]
     Active Substance: PROPRANOLOL HYDROCHLORIDE
  31. METOPROLOL [Concomitant]
     Active Substance: METOPROLOL
  32. TORSEMIDE [Concomitant]
     Active Substance: TORSEMIDE
  33. LEVOFLOXACIN [Concomitant]
     Active Substance: LEVOFLOXACIN
  34. BISEPTOL [Concomitant]
     Active Substance: SULFAMETHOXAZOLE\TRIMETHOPRIM
  35. PIPERACILLIN SODIUM\TAZOBACTAM SODIUM [Concomitant]
     Active Substance: PIPERACILLIN SODIUM\TAZOBACTAM SODIUM
  36. MEROPENEM [Concomitant]
     Active Substance: MEROPENEM
  37. LINEZOLID [Concomitant]
     Active Substance: LINEZOLID
  38. COLISTIN [Concomitant]
     Active Substance: COLISTIN
  39. AMIKIN [Concomitant]
     Active Substance: AMIKACIN SULFATE
  40. CANCIDAS [Concomitant]
     Active Substance: CASPOFUNGIN ACETATE
  41. RYFAMPICYNA [Concomitant]
  42. IPP (POLAND) [Concomitant]
  43. PROKIT [Concomitant]
  44. CACL2 [Concomitant]
  45. MAGNESIUM SULFATE [Concomitant]
     Active Substance: MAGNESIUM SULFATE
  46. GLYCOPHOS [Concomitant]
     Active Substance: SODIUM GLYCEROPHOSPHATE ANHYDROUS
  47. PYRALGIN (POLAND) [Concomitant]
  48. NOSPA [Concomitant]
  49. HYDROCORTISONE [Concomitant]
     Active Substance: HYDROCORTISONE
  50. FRAGMIN [Concomitant]
     Active Substance: DALTEPARIN SODIUM
  51. HEPARYNA [Concomitant]
  52. TRANEXAMIC ACID [Concomitant]
     Active Substance: TRANEXAMIC ACID
  53. CLEMASTINE [Concomitant]
     Active Substance: CLEMASTINE
  54. SULFASALAZYNA [Concomitant]
  55. SPIRONOLACTONE [Concomitant]
     Active Substance: SPIRONOLACTONE
  56. ALDACTONE [Concomitant]
     Active Substance: SPIRONOLACTONE
  57. ORNITHINE ASPARTATE [Concomitant]
     Active Substance: ORNITHINE ASPARTATE
  58. LIDOKAINA [Concomitant]
  59. DEXMEDETOMIDINE HYDROCHLORIDE [Concomitant]
     Active Substance: DEXMEDETOMIDINE HYDROCHLORIDE
  60. PENTOXIFYLLINE [Concomitant]
     Active Substance: PENTOXIFYLLINE
  61. ALBUMIN HUMAN [Concomitant]
     Active Substance: ALBUMIN HUMAN
  62. DEXTROSE [Concomitant]
     Active Substance: DEXTROSE
  63. VIXPO [Concomitant]
     Route: 048
     Dates: start: 20191029

REACTIONS (1)
  - COVID-19 pneumonia [Fatal]

NARRATIVE: CASE EVENT DATE: 20211225
